FAERS Safety Report 15661515 (Version 3)
Quarter: 2020Q2

REPORT INFORMATION
  Report Type: Spontaneous
  Country: IL (occurrence: IL)
  Receive Date: 20181127
  Receipt Date: 20200504
  Transmission Date: 20200713
  Serious: Yes (Hospitalization, Other)
  Sender: FDA-Public Use
  Company Number: IL-ALEXION PHARMACEUTICALS INC-A201707726

PATIENT
  Age: 10 Year
  Sex: Female
  Weight: 41 kg

DRUGS (3)
  1. SOLIRIS [Suspect]
     Active Substance: ECULIZUMAB
     Indication: COMPLEMENT FACTOR DECREASED
     Dosage: 900 MG, UNK
     Route: 042
     Dates: start: 20170130
  2. SOLIRIS [Suspect]
     Active Substance: ECULIZUMAB
     Indication: OFF LABEL USE
     Dosage: 900 MG, Q2W
     Route: 065
  3. SOLIRIS [Suspect]
     Active Substance: ECULIZUMAB
     Dosage: 1200 MG, UNK
     Route: 065

REACTIONS (5)
  - Off label use [Unknown]
  - Viral infection [Recovered/Resolved]
  - Cholelithiasis [Unknown]
  - Thrombocytopenia [Recovered/Resolved]
  - Hepatic enzyme increased [Recovered/Resolved]

NARRATIVE: CASE EVENT DATE: 20171204
